FAERS Safety Report 24292149 (Version 1)
Quarter: 2024Q3

REPORT INFORMATION
  Report Type: Spontaneous
  Country: US (occurrence: None)
  Receive Date: 20240906
  Receipt Date: 20240906
  Transmission Date: 20241016
  Serious: No
  Sender: DOMPE FARMACEUTICI
  Company Number: US-FARMAPROD-202307-2182

PATIENT
  Age: 86 Year
  Sex: Male

DRUGS (15)
  1. OXERVATE [Suspect]
     Active Substance: CENEGERMIN-BKBJ
     Indication: Neurotrophic keratopathy
     Route: 047
     Dates: start: 20230626
  2. OXERVATE [Suspect]
     Active Substance: CENEGERMIN-BKBJ
  3. PROBIOTICS NOS [Concomitant]
     Active Substance: PROBIOTICS NOS
     Dosage: 10 BILLION CELL
  4. VITAMIN D3 [Concomitant]
     Active Substance: CHOLECALCIFEROL
  5. VITAMINS [Concomitant]
     Active Substance: VITAMINS
  6. OMEPRAZOLE [Concomitant]
     Active Substance: OMEPRAZOLE
  7. TAMSULOSIN HYDROCHLORIDE [Concomitant]
     Active Substance: TAMSULOSIN HYDROCHLORIDE
  8. LAMOTRIGINE [Concomitant]
     Active Substance: LAMOTRIGINE
  9. ENTRESTO [Concomitant]
     Active Substance: SACUBITRIL\VALSARTAN
     Dosage: 24 MG-26 MG
  10. NIFEDIPINE [Concomitant]
     Active Substance: NIFEDIPINE
     Dosage: FOR 24 HOURS
  11. ASPIRIN [Concomitant]
     Active Substance: ASPIRIN
  12. REFRESH P.M. [Concomitant]
     Active Substance: MINERAL OIL\PETROLATUM
     Dosage: 42.5-57.3%
  13. MURO-128 [Concomitant]
  14. REFRESH TEARS [Concomitant]
     Active Substance: CARBOXYMETHYLCELLULOSE SODIUM
  15. DORZOLAMIDE HYDROCHLORIDE [Concomitant]
     Active Substance: DORZOLAMIDE HYDROCHLORIDE

REACTIONS (5)
  - Eye pain [Not Recovered/Not Resolved]
  - Ocular discomfort [Not Recovered/Not Resolved]
  - Superficial injury of eye [Unknown]
  - Eye irritation [Unknown]
  - Hypotension [Unknown]

NARRATIVE: CASE EVENT DATE: 20230626
